FAERS Safety Report 19098074 (Version 1)
Quarter: 2021Q2

REPORT INFORMATION
  Report Type: Spontaneous
  Country: GB (occurrence: GB)
  Receive Date: 20210406
  Receipt Date: 20210406
  Transmission Date: 20210717
  Serious: Yes (Other)
  Sender: FDA-Public Use
  Company Number: GB-MYLANLABS-2021M1020295

PATIENT
  Age: 76 Year
  Sex: Female
  Weight: 139 kg

DRUGS (3)
  1. MIRABEGRON [Concomitant]
     Active Substance: MIRABEGRON
     Dosage: UNK
  2. VITAMIN D                          /07503901/ [Concomitant]
     Active Substance: VITAMIN D NOS
     Dosage: UNK
  3. NIZATIDINE. [Suspect]
     Active Substance: NIZATIDINE
     Indication: GASTROINTESTINAL INFLAMMATION
     Dosage: 150 MILLIGRAM, QD
     Route: 048
     Dates: start: 202010, end: 202103

REACTIONS (2)
  - Abdominal distension [Recovering/Resolving]
  - Abnormal weight gain [Unknown]

NARRATIVE: CASE EVENT DATE: 202010
